FAERS Safety Report 10049742 (Version 2)
Quarter: 2016Q1

REPORT INFORMATION
  Report Type: Other
  Country: SE (occurrence: SE)
  Receive Date: 20140401
  Receipt Date: 20160219
  Transmission Date: 20160525
  Serious: Yes (Life-Threatening)
  Sender: FDA-Public Use
  Company Number: SE-ASTELLAS-2014EU002643

PATIENT
  Age: 82 Year
  Sex: Male

DRUGS (1)
  1. MYCAMINE [Suspect]
     Active Substance: MICAFUNGIN SODIUM
     Indication: CANDIDA SEPSIS
     Route: 042
     Dates: start: 20140222, end: 20140317

REACTIONS (3)
  - Pyrexia [Unknown]
  - Leukopenia [Not Recovered/Not Resolved]
  - Anaemia [Unknown]

NARRATIVE: CASE EVENT DATE: 20140316
